FAERS Safety Report 9752274 (Version 1)
Quarter: 2013Q4

REPORT INFORMATION
  Report Type: Spontaneous
  Country: GB (occurrence: None)
  Receive Date: 20131211
  Receipt Date: 20131211
  Transmission Date: 20140711
  Serious: Yes (Hospitalization)
  Sender: FDA-Public Use
  Company Number: GB-20130052

PATIENT
  Age: 26 Year
  Sex: Female

DRUGS (1)
  1. DOTAREM [Suspect]
     Indication: NUCLEAR MAGNETIC RESONANCE IMAGING
     Route: 042
     Dates: start: 20131010, end: 20131010

REACTIONS (5)
  - Chest discomfort [None]
  - Cough [None]
  - Urticaria [None]
  - Wheezing [None]
  - Oxygen saturation decreased [None]
